FAERS Safety Report 9157174 (Version 1)
Quarter: 2013Q1

REPORT INFORMATION
  Report Type: Spontaneous
  Country: GB (occurrence: GB)
  Receive Date: 20130312
  Receipt Date: 20130312
  Transmission Date: 20140127
  Serious: Yes (Hospitalization)
  Sender: FDA-Public Use
  Company Number: GB-PFIZER INC-2013080381

PATIENT
  Age: 23 Year
  Sex: Male
  Weight: 88 kg

DRUGS (3)
  1. CHAMPIX [Suspect]
     Indication: SMOKING CESSATION THERAPY
     Dosage: TITRATE AS PER INSTRUCTIONS ON STARTER PACK
     Route: 048
     Dates: start: 20130219, end: 2013
  2. DICLOFENAC [Concomitant]
     Dosage: 50 MG, 3X/DAY
     Dates: start: 20130115
  3. PROCHLORPERAZINE MALEATE [Concomitant]
     Dosage: 3 MG, UNK
     Dates: start: 20121113

REACTIONS (2)
  - Pericarditis [Not Recovered/Not Resolved]
  - Chest pain [Not Recovered/Not Resolved]
